FAERS Safety Report 9559364 (Version 1)
Quarter: 2013Q3

REPORT INFORMATION
  Report Type: Spontaneous
  Country: US (occurrence: None)
  Receive Date: 20130906
  Receipt Date: 20130906
  Transmission Date: 20140515
  Serious: No
  Sender: FDA-Public Use
  Company Number: 163-POMAL-13080416

PATIENT
  Age: 61 Year
  Sex: Male

DRUGS (10)
  1. POMALYST (POMALIDOMIDE) (4 MILLIGRAM, CAPSULES) [Suspect]
     Indication: PLASMA CELL MYELOMA
     Dosage: 1 IN 1 D
     Route: 048
     Dates: start: 20130529
  2. ASPIRIN [Concomitant]
  3. PLAVIX [Concomitant]
  4. PRAVASTATIN [Concomitant]
  5. DEXAMETHASONE [Concomitant]
  6. WARFARIN [Concomitant]
  7. HCTZ [Concomitant]
  8. FISH OIL [Concomitant]
  9. MAGNESIUM [Concomitant]
  10. VITAMINS [Concomitant]

REACTIONS (2)
  - Pain in jaw [None]
  - Fatigue [None]
